FAERS Safety Report 6163845-6 (Version None)
Quarter: 2009Q2

REPORT INFORMATION
  Report Type: 
  Country: None (occurrence: None)
  Receive Date: 20090420
  Receipt Date: 20090408
  Transmission Date: 20091009
  Serious: Yes (Other)
  Sender: FDA-Public Use
  Company Number: GXKR2009GB04484

PATIENT
  Age: 81 Year
  Sex: Female
  Weight: 53.4 kg

DRUGS (9)
  1. PROPRANOLOL [Suspect]
     Indication: ANXIETY
     Dosage: 40 MG, ORAL
     Route: 048
     Dates: start: 20090312
  2. ZOPICLONE (ZOPICLONE) [Suspect]
     Indication: ANXIETY
     Dosage: 7.5 MG, ORAL
     Route: 048
     Dates: start: 20090310, end: 20090316
  3. ZOPICLONE (ZOPICLONE) [Suspect]
     Indication: SEDATION
     Dosage: 7.5 MG, ORAL
     Route: 048
     Dates: start: 20090310, end: 20090316
  4. BISOPROLOL FUMARATE [Concomitant]
  5. BUPRENORPHINE (IBUPRENORPHINE) [Concomitant]
  6. FUROSEMIDE [Concomitant]
  7. MIRTAZAPINE [Concomitant]
  8. OMEPRAZOLE [Concomitant]
  9. RAMIPRIL [Concomitant]

REACTIONS (4)
  - DYSPNOEA [None]
  - ERYTHEMA [None]
  - PRURITUS [None]
  - SWELLING FACE [None]
